FAERS Safety Report 4545320-5 (Version None)
Quarter: 2004Q4

REPORT INFORMATION
  Report Type: 
  Country: None (occurrence: None)
  Receive Date: 20041222
  Receipt Date: 20040510
  Transmission Date: 20050328
  Serious: Yes (Life-Threatening, Hospitalization, Other)
  Sender: FDA-Public Use
  Company Number: USA040567109

PATIENT
  Age: 59 Year
  Sex: Male
  Weight: 114 kg

DRUGS (2)
  1. HUMALOG [Suspect]
     Dosage: 100 U DAY
     Dates: start: 20000101
  2. HUMALOG [Suspect]
     Dates: start: 20030101

REACTIONS (4)
  - ATRIAL FIBRILLATION [None]
  - CARDIAC DISORDER [None]
  - ILL-DEFINED DISORDER [None]
  - SINUS HEADACHE [None]
